FAERS Safety Report 8439943-0 (Version None)
Quarter: 2012Q2

REPORT INFORMATION
  Report Type: 
  Country: None (occurrence: None)
  Receive Date: 20120615
  Receipt Date: 20120603
  Transmission Date: 20120825
  Serious: Yes (Hospitalization, Other)
  Sender: FDA-Public Use
  Company Number: IL-VERTEX PHARMACEUTICALS INC.-000000000000000814

PATIENT
  Age: 43 Year
  Sex: Male

DRUGS (3)
  1. PEGASYS [Concomitant]
     Indication: HEPATITIS C
     Dates: start: 20120323
  2. INCIVO [Suspect]
     Indication: HEPATITIS C
     Dosage: DOSAGE FORM: TABLET
     Route: 048
     Dates: start: 20120323
  3. COPEGUS [Concomitant]
     Indication: HEPATITIS C
     Dates: start: 20120323

REACTIONS (5)
  - PYREXIA [None]
  - PRURITUS [None]
  - RASH [None]
  - ANAEMIA [None]
  - COUGH [None]
